FAERS Safety Report 4518329-5 (Version None)
Quarter: 2004Q4

REPORT INFORMATION
  Report Type: 
  Country: None (occurrence: None)
  Receive Date: 20041203
  Receipt Date: 20040819
  Transmission Date: 20050328
  Serious: Yes (Hospitalization)
  Sender: FDA-Public Use
  Company Number: JP-ABBOTT-04P-087-0271278-00

PATIENT
  Sex: Male

DRUGS (2)
  1. KALETRA [Suspect]
     Indication: HIV INFECTION
     Route: 048
  2. ZIDOVUDINE W/LAMIVUDINE [Suspect]
     Indication: HIV INFECTION
     Route: 048

REACTIONS (1)
  - LIVER DISORDER [None]
